FAERS Safety Report 7612109-X (Version None)
Quarter: 2011Q3

REPORT INFORMATION
  Report Type: 
  Country: None (occurrence: None)
  Receive Date: 20110715
  Receipt Date: 20110705
  Transmission Date: 20111222
  Serious: Yes (Hospitalization, Other)
  Sender: FDA-Public Use
  Company Number: FR-ALLERGAN-1108457US

PATIENT
  Age: 64 Year
  Sex: Female

DRUGS (5)
  1. CERETIDE [Concomitant]
     Dosage: 500 MG
  2. HYDROCORTISONE [Concomitant]
     Dosage: 50 MG, QD
  3. AZOPT [Suspect]
     Indication: GLAUCOMA
  4. LUMIGAN [Suspect]
     Indication: GLAUCOMA
     Dosage: 2 GTT, QD
     Route: 047
     Dates: start: 20110620
  5. BUDESONIDE [Concomitant]

REACTIONS (1)
  - ANGIOEDEMA [None]
